FAERS Safety Report 6519377-6 (Version None)
Quarter: 2009Q4

REPORT INFORMATION
  Report Type: 
  Country: None (occurrence: None)
  Receive Date: 20091228
  Receipt Date: 20091218
  Transmission Date: 20100525
  Serious: Yes (Other)
  Sender: FDA-Public Use
  Company Number: AU-ABBOTT-09P-008-0612731-00

PATIENT
  Sex: Male

DRUGS (1)
  1. LUCRIN DEPOT 22.5 MG [Suspect]
     Indication: PROSTATE CANCER
     Dates: start: 20091027

REACTIONS (2)
  - DRUG INEFFECTIVE [None]
  - HISTOLOGY ABNORMAL [None]
